FAERS Safety Report 23218437 (Version 2)
Quarter: 2023Q4

REPORT INFORMATION
  Report Type: Spontaneous
  Country: US (occurrence: US)
  Receive Date: 20231122
  Receipt Date: 20231228
  Transmission Date: 20240110
  Serious: Yes (Other)
  Sender: FDA-Public Use
  Company Number: US-ALVOGEN-2023092556

PATIENT
  Sex: Female

DRUGS (1)
  1. AMPHETAMINE [Suspect]
     Active Substance: AMPHETAMINE
     Indication: Narcolepsy
     Dosage: EXPIRATION DATE: 05-NOV-2024?STRENGTH: 20 MG

REACTIONS (7)
  - Immobile [Unknown]
  - Delirium [Unknown]
  - Obsessive-compulsive disorder [Unknown]
  - Sedation [Unknown]
  - Confusional state [Unknown]
  - Attention deficit hyperactivity disorder [Unknown]
  - Product taste abnormal [Unknown]
